FAERS Safety Report 14304767 (Version 1)
Quarter: 2017Q4

REPORT INFORMATION
  Report Type: Spontaneous
  Country: JP (occurrence: JP)
  Receive Date: 20171219
  Receipt Date: 20171219
  Transmission Date: 20180321
  Serious: Yes (Other)
  Sender: FDA-Public Use
  Company Number: JP-OTSUKA-010927

PATIENT
  Age: 22 Year
  Sex: Female

DRUGS (12)
  1. LENDEM [Concomitant]
     Dosage: 0.25 MG, QD
     Route: 048
     Dates: start: 20090616
  2. SEROQUEL [Suspect]
     Active Substance: QUETIAPINE FUMARATE
     Indication: RESTLESSNESS
     Dosage: 100~400MG, PRN
     Route: 048
     Dates: start: 20100206
  3. QUETIAPINE. [Suspect]
     Active Substance: QUETIAPINE
     Indication: RESTLESSNESS
     Dosage: 1 DF:100-400MG IN PM ;200MG QD 06FEB10-UNK.
     Route: 048
     Dates: start: 201002
  4. DEPAKENE [Concomitant]
     Active Substance: VALPROIC ACID
     Dosage: 200 MG, BID
     Route: 048
     Dates: start: 20090626
  5. ABILIFY [Suspect]
     Active Substance: ARIPIPRAZOLE
     Indication: SCHIZOPHRENIA
     Dosage: 30 MG, QD
     Route: 048
     Dates: start: 20090807, end: 20100817
  6. ABILIFY [Suspect]
     Active Substance: ARIPIPRAZOLE
     Dosage: 12 MG, QD
     Route: 048
     Dates: start: 20100915
  7. ABILIFY [Suspect]
     Active Substance: ARIPIPRAZOLE
     Dosage: 24 MG, QD
     Route: 048
     Dates: start: 20100818, end: 20100914
  8. CYMBALTA [Suspect]
     Active Substance: DULOXETINE HYDROCHLORIDE
     Indication: DEPRESSION
     Dosage: 20MG CAPSULES
     Route: 048
     Dates: start: 20100603
  9. ROHYPNOL [Concomitant]
     Active Substance: FLUNITRAZEPAM
     Dosage: 2 MG, QD
     Route: 065
     Dates: start: 20090618
  10. FLUNITRAZEPAM [Concomitant]
     Active Substance: FLUNITRAZEPAM
     Dosage: 2 MG, UNK
     Dates: start: 20090618
  11. CYMBALTA [Suspect]
     Active Substance: DULOXETINE HYDROCHLORIDE
     Dosage: 40 MG, QD
     Route: 048
     Dates: start: 20100603
  12. SEROQUEL [Suspect]
     Active Substance: QUETIAPINE FUMARATE
     Dosage: 200 MG, QD
     Route: 048
     Dates: start: 20100206

REACTIONS (1)
  - Loss of consciousness [Recovering/Resolving]

NARRATIVE: CASE EVENT DATE: 20100817
